FAERS Safety Report 4965785-4 (Version None)
Quarter: 2006Q2

REPORT INFORMATION
  Report Type: 
  Country: None (occurrence: None)
  Receive Date: 20060406
  Receipt Date: 20060406
  Transmission Date: 20061013
  Serious: Yes (Hospitalization, Other)
  Sender: FDA-Public Use
  Company Number: None

PATIENT
  Sex: Female
  Weight: 58 kg

DRUGS (18)
  1. PROGRAF [Suspect]
     Indication: RENAL TRANSPLANT
     Dosage: 1 MG BID PO
     Route: 048
     Dates: start: 20060220, end: 20060315
  2. PROGRAF [Suspect]
     Route: 048
  3. PROGRAF [Suspect]
     Dosage: 0.5 MG BID PO
     Route: 048
     Dates: start: 20060315, end: 20060321
  4. LISINOPRIL [Concomitant]
  5. CLONIDINE [Concomitant]
  6. NORVASC [Concomitant]
  7. LANTUS [Concomitant]
  8. REGULAR INSULIN [Concomitant]
  9. PAXIL [Concomitant]
  10. DIOVAN [Concomitant]
  11. ATENOLOL [Concomitant]
  12. K PHOS NEUTRAL [Concomitant]
  13. MAGNESIUM [Concomitant]
  14. LASIX [Concomitant]
  15. VANCO [Concomitant]
  16. PROTONIX [Concomitant]
  17. SYNTHROID [Concomitant]
  18. PREDNISONE [Concomitant]

REACTIONS (9)
  - ABDOMINAL PAIN [None]
  - CLOSTRIDIAL INFECTION [None]
  - CONDITION AGGRAVATED [None]
  - CONTUSION [None]
  - DIARRHOEA [None]
  - DRUG LEVEL INCREASED [None]
  - HAEMORRHAGE [None]
  - IDIOPATHIC THROMBOCYTOPENIC PURPURA [None]
  - PLATELET COUNT DECREASED [None]
